FAERS Safety Report 9676188 (Version 1)
Quarter: 2013Q4

REPORT INFORMATION
  Report Type: Spontaneous
  Country: GB (occurrence: GB)
  Receive Date: 20131107
  Receipt Date: 20131107
  Transmission Date: 20140711
  Serious: Yes (Life-Threatening, Hospitalization)
  Sender: FDA-Public Use
  Company Number: GB-WATSON-2013-20432

PATIENT
  Age: 64 Year
  Sex: Male
  Weight: 87 kg

DRUGS (2)
  1. ALLOPURINOL (UNKNOWN) [Suspect]
     Indication: HYPERURICAEMIA
     Dosage: 1 DF, UNK
     Route: 048
     Dates: start: 20130210, end: 20130210
  2. OMEPRAZOLE [Concomitant]
     Indication: GASTROOESOPHAGEAL REFLUX DISEASE
     Dosage: UNK, LONG TERM MEDICATION
     Route: 065

REACTIONS (5)
  - Loss of consciousness [Recovered/Resolved]
  - Rash [Recovered/Resolved]
  - Pyrexia [Recovered/Resolved]
  - Vomiting [Recovered/Resolved]
  - Skin discolouration [Recovered/Resolved]
